FAERS Safety Report 9945172 (Version 1)
Quarter: 2014Q1

REPORT INFORMATION
  Report Type: Report from Study
  Country: US (occurrence: US)
  Receive Date: 20140303
  Receipt Date: 20140303
  Transmission Date: 20141002
  Serious: No
  Sender: FDA-Public Use
  Company Number: US-ABBVIE-13P-163-1051674-00

PATIENT
  Age: 36 Year
  Sex: Male

DRUGS (12)
  1. HUMIRA [Suspect]
     Indication: COLITIS ULCERATIVE
     Dates: start: 20130105
  2. XANAX [Concomitant]
     Indication: ANXIETY
  3. VICOPROFEN [Concomitant]
     Indication: POST HERPETIC NEURALGIA
     Dosage: 7.5/200MG, EVERY 6 HOURS, AS NEEDED
  4. VICOPROFEN [Concomitant]
     Dosage: 10/200MG, EVERY 6 HOURS, AS NEEDED
  5. ELAVIL [Concomitant]
     Indication: POST HERPETIC NEURALGIA
  6. LEXAPRO [Concomitant]
     Indication: ANXIETY
  7. ASACOL HD [Concomitant]
     Indication: PROCTITIS
  8. HYDROCORTISONE [Concomitant]
     Indication: PROCTITIS
     Dosage: DAILY
  9. CANASA [Concomitant]
     Indication: PROCTITIS
  10. MULTIVITAMINS [Concomitant]
     Indication: PRODUCT USED FOR UNKNOWN INDICATION
     Dosage: DAILY
  11. VITAMIN C [Concomitant]
     Indication: PRODUCT USED FOR UNKNOWN INDICATION
  12. LIDODERM [Concomitant]
     Indication: POST HERPETIC NEURALGIA
     Dosage: PATCHES, 5% LIDOCAINE

REACTIONS (5)
  - Abdominal pain lower [Not Recovered/Not Resolved]
  - Gastrointestinal pain [Unknown]
  - Diarrhoea [Unknown]
  - Inappropriate schedule of drug administration [Unknown]
  - Blood cholesterol increased [Unknown]
